FAERS Safety Report 6507032-8 (Version None)
Quarter: 2009Q4

REPORT INFORMATION
  Report Type: 
  Country: None (occurrence: None)
  Receive Date: 20091221
  Receipt Date: 20091208
  Transmission Date: 20100525
  Serious: Yes (Disabling, Other)
  Sender: FDA-Public Use
  Company Number: US-SANOFI-AVENTIS-2009SA009257

PATIENT
  Age: 0 Day
  Sex: Female
  Weight: 2.1 kg

DRUGS (4)
  1. ENOXAPARIN SODIUM [Suspect]
     Route: 064
     Dates: start: 20090826
  2. PROGESTERONE [Concomitant]
     Route: 064
  3. CELESTONE /NET/ [Concomitant]
     Route: 064
     Dates: start: 20090921
  4. METROGEL [Concomitant]
     Indication: VAGINAL INFECTION
     Route: 064
     Dates: start: 20090907

REACTIONS (2)
  - DRUG EXPOSURE DURING PREGNANCY [None]
  - FEMUR FRACTURE [None]
